FAERS Safety Report 11734062 (Version 1)
Quarter: 2015Q4

REPORT INFORMATION
  Report Type: Spontaneous
  Country: US (occurrence: None)
  Receive Date: 20151112
  Receipt Date: 20151112
  Transmission Date: 20160304
  Serious: Yes (Other)
  Sender: FDA-Public Use
  Company Number: None

PATIENT
  Age: 12 Year
  Sex: Female
  Weight: 63.5 kg

DRUGS (1)
  1. CEFALEXIN 250MG/5ML LUPIN [Suspect]
     Active Substance: CEPHALEXIN
     Indication: RASH
     Route: 048
     Dates: start: 20151110, end: 20151110

REACTIONS (6)
  - Generalised erythema [None]
  - Urticaria [None]
  - Erythema [None]
  - Swelling face [None]
  - Pruritus generalised [None]
  - Skin warm [None]

NARRATIVE: CASE EVENT DATE: 20151110
